FAERS Safety Report 19410094 (Version 1)
Quarter: 2021Q2

REPORT INFORMATION
  Report Type: Spontaneous
  Country: EG (occurrence: EG)
  Receive Date: 20210614
  Receipt Date: 20210614
  Transmission Date: 20210717
  Serious: Yes (Life-Threatening, Other)
  Sender: FDA-Public Use
  Company Number: EG-HIKMA PHARMACEUTICALS USA INC.-EG-H14001-21-02694

PATIENT
  Age: 56 Year
  Sex: Female

DRUGS (6)
  1. LEUCOVORIN CALCIUM. [Suspect]
     Active Substance: LEUCOVORIN CALCIUM
     Indication: COLON CANCER
     Dosage: OVER 2 HOURS,ON DAY ONE AND TWO OF EACH CYCLE
     Route: 041
     Dates: start: 202009
  2. GAPTIN [Concomitant]
     Indication: NEUROPATHY PERIPHERAL
  3. OXAPLATIN [Suspect]
     Active Substance: OXALIPLATIN
     Indication: COLON CANCER
     Dosage: ADMINISTERED ON DAY ONE OF EACH CYCLE OVER 2 HOURS
     Route: 041
     Dates: start: 202011
  4. ESOMEPRAZOL [Concomitant]
     Active Substance: ESOMEPRAZOLE
     Indication: PEPTIC ULCER
  5. UTORAL [Suspect]
     Active Substance: FLUOROURACIL
     Indication: COLON CANCER
     Dosage: OVER 11 HOURS, ADMINISTERED ON DAY ONE AND TWO OF EACH CYCLE
     Dates: start: 202011
  6. TRYPTIZOL [Concomitant]
     Active Substance: AMITRIPTYLINE HYDROCHLORIDE
     Indication: PRODUCT USED FOR UNKNOWN INDICATION

REACTIONS (5)
  - Dyspnoea [Unknown]
  - Erythema [Unknown]
  - Swelling face [Unknown]
  - Tachycardia [Unknown]
  - Vomiting [Unknown]

NARRATIVE: CASE EVENT DATE: 20210421
